FAERS Safety Report 19247281 (Version 1)
Quarter: 2021Q2

REPORT INFORMATION
  Report Type: Spontaneous
  Country: CA (occurrence: CA)
  Receive Date: 20210512
  Receipt Date: 20210512
  Transmission Date: 20210717
  Serious: Yes (Other)
  Sender: FDA-Public Use
  Company Number: CA-ACCORD-224796

PATIENT
  Age: 49 Year
  Sex: Female

DRUGS (7)
  1. TAMOXIFEN [Suspect]
     Active Substance: TAMOXIFEN
     Indication: PRODUCT USED FOR UNKNOWN INDICATION
     Route: 048
  2. ZOLADEX [Suspect]
     Active Substance: GOSERELIN ACETATE
     Indication: PRODUCT USED FOR UNKNOWN INDICATION
     Route: 058
  3. IBRANCE [Concomitant]
     Active Substance: PALBOCICLIB
     Route: 065
  4. ANASTROZOLE. [Suspect]
     Active Substance: ANASTROZOLE
     Indication: PRODUCT USED FOR UNKNOWN INDICATION
     Route: 048
  5. EXEMESTANE. [Concomitant]
     Active Substance: EXEMESTANE
     Route: 065
  6. FULVESTRANT. [Concomitant]
     Active Substance: FULVESTRANT
     Route: 065
  7. AFINITOR [Concomitant]
     Active Substance: EVEROLIMUS
     Route: 065

REACTIONS (1)
  - Malignant neoplasm progression [Unknown]
